FAERS Safety Report 5417275-2 (Version None)
Quarter: 2007Q3

REPORT INFORMATION
  Report Type: 
  Country: None (occurrence: None)
  Receive Date: 20070718
  Receipt Date: 20070508
  Transmission Date: 20080115
  Serious: Yes (Hospitalization, Other)
  Sender: FDA-Public Use
  Company Number: 2004118723

PATIENT
  Age: 45 Year
  Sex: Female
  Weight: 90.7 kg

DRUGS (1)
  1. CELEBREX [Suspect]
     Indication: ARTHRITIS
     Dosage: (DAILY), ORAL
     Route: 048
     Dates: start: 20000807

REACTIONS (2)
  - CEREBROVASCULAR DISORDER [None]
  - MYOCARDIAL INFARCTION [None]
